FAERS Safety Report 6077638-1 (Version None)
Quarter: 2009Q1

REPORT INFORMATION
  Report Type: 
  Country: None (occurrence: None)
  Receive Date: 20090213
  Receipt Date: 20090206
  Transmission Date: 20090719
  Serious: Yes (Other)
  Sender: FDA-Public Use
  Company Number: US-ELI_LILLY_AND_COMPANY-US200901003568

PATIENT
  Sex: Male

DRUGS (5)
  1. BYETTA [Suspect]
     Dosage: 10 UG, 2/D
     Dates: start: 20050501
  2. AVAPRO [Concomitant]
     Dosage: 150 MG, DAILY (1/D)
  3. PRILOSEC [Concomitant]
     Dosage: 20 MG, AS NEEDED
  4. FELODIPINE [Concomitant]
     Dosage: 10 MG, DAILY (1/D)
  5. ACETYLSALICYLIC ACID SRT [Concomitant]
     Dosage: 81 MG, DAILY (1/D)

REACTIONS (1)
  - TONSIL CANCER [None]
